FAERS Safety Report 7730037-6 (Version None)
Quarter: 2011Q3

REPORT INFORMATION
  Report Type: 
  Country: None (occurrence: None)
  Receive Date: 20110901
  Receipt Date: 20110901
  Transmission Date: 20111222
  Serious: Yes (Hospitalization, Disabling, Other)
  Sender: FDA-Public Use
  Company Number: None

PATIENT
  Sex: Male
  Weight: 72.5755 kg

DRUGS (1)
  1. LYRICA [Suspect]
     Indication: HERPES ZOSTER
     Dosage: 1 TWICE DAILY
     Dates: start: 20110624

REACTIONS (5)
  - MOOD ALTERED [None]
  - URINARY INCONTINENCE [None]
  - MEMORY IMPAIRMENT [None]
  - ASTHENIA [None]
  - FAECAL INCONTINENCE [None]
